FAERS Safety Report 13941919 (Version 2)
Quarter: 2018Q1

REPORT INFORMATION
  Report Type: Spontaneous
  Country: US (occurrence: US)
  Receive Date: 20170906
  Receipt Date: 20180115
  Transmission Date: 20180508
  Serious: Yes (Hospitalization, Other)
  Sender: FDA-Public Use
  Company Number: US-DSJP-DSU-2017-135298

PATIENT

DRUGS (2)
  1. BENICAR [Suspect]
     Active Substance: OLMESARTAN MEDOXOMIL
     Dosage: 5 MG, QD
     Route: 048
     Dates: start: 20130219, end: 20131125
  2. BENICAR [Suspect]
     Active Substance: OLMESARTAN MEDOXOMIL
     Indication: PRODUCT USED FOR UNKNOWN INDICATION
     Dosage: 20 MG, QD
     Route: 048
     Dates: start: 20060728, end: 20131125

REACTIONS (6)
  - Orthostatic hypotension [Recovered/Resolved]
  - Gastrointestinal inflammation [Unknown]
  - Colitis [Recovered/Resolved]
  - Small intestinal obstruction [Unknown]
  - Dehydration [Recovered/Resolved]
  - Diverticulum [Unknown]

NARRATIVE: CASE EVENT DATE: 20070110
